FAERS Safety Report 5252065-5 (Version None)
Quarter: 2007Q1

REPORT INFORMATION
  Report Type: 
  Country: None (occurrence: None)
  Receive Date: 20070226
  Receipt Date: 20060717
  Transmission Date: 20070707
  Serious: Yes (Hospitalization)
  Sender: FDA-Public Use
  Company Number: DSA_26720_2005

PATIENT
  Age: 71 Year
  Sex: Female

DRUGS (10)
  1. DILZEM [Suspect]
     Indication: ATRIAL FIBRILLATION
     Dosage: 90 MG BID PO
     Route: 048
     Dates: start: 20050301, end: 20050414
  2. DILZEM [Suspect]
     Indication: CARDIAC FLUTTER
     Dosage: 90 MG BID PO
     Route: 048
     Dates: start: 20050301, end: 20050414
  3. AUGMENTIN [Suspect]
     Indication: DERMATITIS INFECTED
     Dosage: 2.2 G TID IV
     Route: 042
     Dates: start: 20050408, end: 20050409
  4. AUGMENTIN [Suspect]
     Indication: DERMATITIS INFECTED
     Dosage: 625 MG TID PO
     Route: 048
     Dates: start: 20050410, end: 20050414
  5. FRAXIPARINE [Concomitant]
  6. ARIMIDEX [Concomitant]
  7. RISPERDAL [Concomitant]
  8. SERESTA [Concomitant]
  9. TORSEMIDE [Concomitant]
  10. NEXIUM [Concomitant]

REACTIONS (6)
  - ALANINE AMINOTRANSFERASE INCREASED [None]
  - DERMATITIS INFECTED [None]
  - DERMO-HYPODERMITIS [None]
  - GAMMA-GLUTAMYLTRANSFERASE INCREASED [None]
  - HENOCH-SCHONLEIN PURPURA [None]
  - LEUKOCYTOCLASTIC VASCULITIS [None]
